FAERS Safety Report 5457767-3 (Version None)
Quarter: 2007Q3

REPORT INFORMATION
  Report Type: 
  Country: None (occurrence: None)
  Receive Date: 20070918
  Receipt Date: 20070906
  Transmission Date: 20080115
  Serious: Yes (Death)
  Sender: FDA-Public Use
  Company Number: FR-PFIZER INC-2007075474

PATIENT
  Sex: Female

DRUGS (4)
  1. ADRIBLASTINE [Suspect]
     Indication: BREAST CANCER
  2. TAXOTERE [Concomitant]
  3. ENDOXAN [Concomitant]
  4. ALL OTHER THERAPEUTIC PRODUCTS [Concomitant]

REACTIONS (7)
  - APLASIA [None]
  - DEATH [None]
  - DISEASE PROGRESSION [None]
  - ENDOCARDITIS [None]
  - MULTI-ORGAN FAILURE [None]
  - PALMAR-PLANTAR ERYTHRODYSAESTHESIA SYNDROME [None]
  - UROSEPSIS [None]
